FAERS Safety Report 20373273 (Version 1)
Quarter: 2022Q1

REPORT INFORMATION
  Report Type: Spontaneous
  Country: FR (occurrence: FR)
  Receive Date: 20220125
  Receipt Date: 20220125
  Transmission Date: 20220424
  Serious: Yes (Hospitalization, Other)
  Sender: FDA-Public Use
  Company Number: FR-SUN PHARMACEUTICAL INDUSTRIES LTD-2022RR-324704

PATIENT
  Age: 51 Year
  Sex: Male

DRUGS (6)
  1. AZITHROMYCIN [Suspect]
     Active Substance: AZITHROMYCIN
     Indication: Urethritis mycoplasmal
     Dosage: 1 GRAM SINGLE-DOSE
     Route: 065
  2. MOXIFLOXACIN [Suspect]
     Active Substance: MOXIFLOXACIN
     Indication: Urethritis mycoplasmal
     Dosage: UNK
     Route: 065
  3. MOXIFLOXACIN [Suspect]
     Active Substance: MOXIFLOXACIN
     Dosage: 400 MILLIGRAM, DAILY
     Route: 065
  4. CEFIXIME [Suspect]
     Active Substance: CEFIXIME
     Indication: Urethritis mycoplasmal
     Dosage: UNK
     Route: 048
  5. DOXYCYCLINE [Suspect]
     Active Substance: DOXYCYCLINE
     Indication: Urethritis mycoplasmal
     Dosage: UNK
     Route: 065
  6. DOXYCYCLINE [Suspect]
     Active Substance: DOXYCYCLINE
     Dosage: 200 MILLIGRAM, DAILY
     Route: 065

REACTIONS (4)
  - Drug ineffective [Unknown]
  - Tendon pain [Unknown]
  - Disease recurrence [Unknown]
  - Drug resistance [Unknown]
